FAERS Safety Report 17272473 (Version 1)
Quarter: 2020Q1

REPORT INFORMATION
  Report Type: Spontaneous
  Country: US (occurrence: US)
  Receive Date: 20200114
  Receipt Date: 20200114
  Transmission Date: 20200409
  Serious: No
  Sender: FDA-Public Use
  Company Number: None

PATIENT
  Age: 42 Year
  Sex: Female
  Weight: 101.25 kg

DRUGS (5)
  1. METOPROLOL ER SUCCINATE [Suspect]
     Active Substance: METOPROLOL SUCCINATE
     Dosage: ?          QUANTITY:1 TABLET(S);?
     Route: 048
     Dates: start: 20200111, end: 20200113
  2. ADVIL [Concomitant]
     Active Substance: IBUPROFEN
  3. TOPROL XL [Concomitant]
     Active Substance: METOPROLOL SUCCINATE
  4. CARBAMAZAPINE [Concomitant]
     Active Substance: CARBAMAZEPINE
  5. TYLENOL [Concomitant]
     Active Substance: ACETAMINOPHEN

REACTIONS (3)
  - Urticaria [None]
  - Product substitution issue [None]
  - Drug hypersensitivity [None]

NARRATIVE: CASE EVENT DATE: 20200112
